FAERS Safety Report 8537067-5 (Version None)
Quarter: 2012Q3

REPORT INFORMATION
  Report Type: 
  Country: None (occurrence: None)
  Receive Date: 20120725
  Receipt Date: 20120713
  Transmission Date: 20120928
  Serious: Yes (Death, Hospitalization)
  Sender: FDA-Public Use
  Company Number: DE-CELGENEUS-062-21880-12070801

PATIENT
  Age: 72 Year
  Sex: Female
  Weight: 72 kg

DRUGS (7)
  1. REVLIMID [Suspect]
     Dosage: 10 MILLIGRAM
     Route: 048
     Dates: start: 20120622, end: 20120706
  2. DIGOXIN [Concomitant]
     Dosage: .035 MILLIGRAM
     Route: 048
  3. CANDESARTAN [Concomitant]
     Dosage: 16 MILLIGRAM
     Route: 048
  4. POTASSIUM CHLORIDE [Concomitant]
     Route: 065
  5. TORSEMIDE [Concomitant]
     Dosage: 30 MILLIGRAM
     Route: 048
  6. FRAXIPARIN [Concomitant]
     Dosage: .8 MILLILITER
     Route: 058
  7. METOPROLOL TARTRATE [Concomitant]
     Dosage: 190 MILLIGRAM
     Route: 048

REACTIONS (4)
  - ACUTE MYOCARDIAL INFARCTION [None]
  - TACHYARRHYTHMIA [None]
  - INFECTION [None]
  - CEREBRAL ISCHAEMIA [None]
